FAERS Safety Report 6627887-6 (Version None)
Quarter: 2010Q1

REPORT INFORMATION
  Report Type: 
  Country: None (occurrence: None)
  Receive Date: 20100311
  Receipt Date: 20090220
  Transmission Date: 20100710
  Serious: No
  Sender: FDA-Public Use
  Company Number: A0769713A

PATIENT
  Age: 68 Year
  Sex: Female

DRUGS (1)
  1. NICORETTE [Suspect]

REACTIONS (6)
  - EATING DISORDER [None]
  - OEDEMA MOUTH [None]
  - ORAL PAIN [None]
  - OROPHARYNGEAL BLISTERING [None]
  - STOMATITIS [None]
  - TONGUE DISORDER [None]
